FAERS Safety Report 20814658 (Version 1)
Quarter: 2022Q2

REPORT INFORMATION
  Report Type: Spontaneous
  Country: US (occurrence: US)
  Receive Date: 20220511
  Receipt Date: 20220511
  Transmission Date: 20220721
  Serious: Yes (Other)
  Sender: FDA-Public Use
  Company Number: US-PFIZER INC-202200669548

PATIENT
  Sex: Male

DRUGS (1)
  1. PAXLOVID [Suspect]
     Active Substance: NIRMATRELVIR\RITONAVIR
     Indication: COVID-19 treatment
     Dosage: UNK

REACTIONS (6)
  - Dysphagia [Unknown]
  - Pharyngeal swelling [Unknown]
  - Sensation of foreign body [Unknown]
  - Functional gastrointestinal disorder [Unknown]
  - Gastrooesophageal reflux disease [Unknown]
  - Malaise [Unknown]
